FAERS Safety Report 6375685-3 (Version None)
Quarter: 2009Q3

REPORT INFORMATION
  Report Type: 
  Country: None (occurrence: None)
  Receive Date: 20090921
  Receipt Date: 20090921
  Transmission Date: 20100115
  Serious: No
  Sender: FDA-Public Use
  Company Number: None

PATIENT
  Sex: Female
  Weight: 94 kg

DRUGS (4)
  1. CISPLATIN [Suspect]
     Dosage: 100 MG
  2. DOXORUBICIN HCL [Suspect]
     Dosage: 90 MG
  3. G-CSF (FILGRASTIM, AMGEN) [Suspect]
     Dosage: 480 MCG
  4. TAXOL [Suspect]
     Dosage: 320 MG

REACTIONS (1)
  - ELECTROLYTE IMBALANCE [None]
